FAERS Safety Report 7474901-4 (Version None)
Quarter: 2011Q2

REPORT INFORMATION
  Report Type: 
  Country: None (occurrence: None)
  Receive Date: 20110509
  Receipt Date: 20110509
  Transmission Date: 20111010
  Serious: No
  Sender: FDA-Public Use
  Company Number: None

PATIENT
  Sex: Female
  Weight: 63.5036 kg

DRUGS (1)
  1. EFFEXOR XR [Suspect]
     Indication: HOT FLUSH
     Dosage: 75MG 1QD PO
     Route: 048
     Dates: start: 20110401, end: 20110506

REACTIONS (7)
  - HEADACHE [None]
  - HYPERHIDROSIS [None]
  - HOT FLUSH [None]
  - FATIGUE [None]
  - COGNITIVE DISORDER [None]
  - PRODUCT QUALITY ISSUE [None]
  - PARAESTHESIA [None]
